FAERS Safety Report 10024971 (Version 1)
Quarter: 2014Q1

REPORT INFORMATION
  Report Type: Spontaneous
  Country: US (occurrence: US)
  Receive Date: 20140320
  Receipt Date: 20140320
  Transmission Date: 20141002
  Serious: Yes (Death, Life-Threatening, Hospitalization, Other)
  Sender: FDA-Public Use
  Company Number: PHHY2014US030892

PATIENT
  Age: 60 Year
  Sex: Female

DRUGS (6)
  1. 5-FLUOROURACIL [Suspect]
     Indication: COLON CANCER STAGE IV
     Dosage: 400 MG/M2, UNK
     Route: 042
  2. 5-FLUOROURACIL [Suspect]
     Indication: COLON CANCER METASTATIC
     Dosage: 2400 MG/M2, UNK
     Route: 042
  3. LEUCOVORIN [Concomitant]
     Indication: COLON CANCER STAGE IV
     Dosage: 400 MG/M2, UNK
  4. LEUCOVORIN [Concomitant]
     Indication: COLON CANCER METASTATIC
  5. OXALIPLATIN [Concomitant]
     Indication: COLON CANCER STAGE IV
     Dosage: 85 MG/M2, UNK
  6. OXALIPLATIN [Concomitant]
     Indication: COLON CANCER METASTATIC

REACTIONS (16)
  - Death [Fatal]
  - Toxicity to various agents [Unknown]
  - Large intestine perforation [Unknown]
  - Peritonitis [Unknown]
  - Delirium [Unknown]
  - Mucosal inflammation [Unknown]
  - Oesophagitis [Unknown]
  - Pain [Unknown]
  - Dehydration [Unknown]
  - Pancytopenia [Recovered/Resolved]
  - International normalised ratio increased [Recovering/Resolving]
  - Clostridium difficile infection [Unknown]
  - Blood lactate dehydrogenase increased [Unknown]
  - Blood urea increased [Unknown]
  - Blood potassium decreased [Unknown]
  - Blood alkaline phosphatase increased [Unknown]
